FAERS Safety Report 5801429-7 (Version None)
Quarter: 2008Q2

REPORT INFORMATION
  Report Type: 
  Country: None (occurrence: None)
  Receive Date: 20080626
  Receipt Date: 20070821
  Transmission Date: 20081010
  Serious: Yes (Hospitalization)
  Sender: FDA-Public Use
  Company Number: 512709

PATIENT
  Age: 60 Year
  Sex: Female
  Weight: 56.7 kg

DRUGS (5)
  1. XELODA [Suspect]
     Indication: BREAST CANCER
     Dosage: 1500 MG DAILY 2 PER DAY ORAL
     Route: 048
     Dates: start: 20070628, end: 20070629
  2. TYKERB [Suspect]
     Indication: BREAST CANCER
     Dosage: 1250 MG DAILY ORAL
     Route: 048
     Dates: start: 20070628, end: 20070629
  3. BENZONATATE [Concomitant]
  4. PROMETHEZINE HCL [Concomitant]
  5. OXYCODONE HCL [Concomitant]

REACTIONS (1)
  - DIARRHOEA [None]
